FAERS Safety Report 9684910 (Version 1)
Quarter: 2013Q4

REPORT INFORMATION
  Report Type: Spontaneous
  Country: US (occurrence: US)
  Receive Date: 20131113
  Receipt Date: 20131113
  Transmission Date: 20140711
  Serious: Yes (Hospitalization)
  Sender: FDA-Public Use
  Company Number: US-ROCHE-1300571

PATIENT
  Age: 63 Year
  Sex: Male
  Weight: 112.14 kg

DRUGS (7)
  1. TAMIFLU [Suspect]
     Indication: ANTIVIRAL PROPHYLAXIS
     Route: 048
     Dates: start: 20131030, end: 20131102
  2. ANDROGEL [Concomitant]
     Route: 065
     Dates: start: 2006
  3. LISINOPRIL [Concomitant]
     Indication: HYPERTENSION
     Route: 065
     Dates: start: 2006
  4. TRILIPIX [Concomitant]
     Indication: BLOOD TRIGLYCERIDES INCREASED
     Route: 065
     Dates: start: 2008
  5. BABY ASPIRIN [Concomitant]
  6. SIMVASTATIN [Concomitant]
     Indication: BLOOD CHOLESTEROL INCREASED
     Route: 065
     Dates: start: 2007
  7. NASACORT AQ [Concomitant]
     Indication: HYPERSENSITIVITY
     Route: 065
     Dates: start: 2007

REACTIONS (2)
  - Pancreatitis [Unknown]
  - Abdominal pain [Unknown]
